FAERS Safety Report 6531568-7 (Version None)
Quarter: 2010Q1

REPORT INFORMATION
  Report Type: 
  Country: None (occurrence: None)
  Receive Date: 20100107
  Receipt Date: 20100107
  Transmission Date: 20100710
  Serious: Yes (Hospitalization)
  Sender: FDA-Public Use
  Company Number: None

PATIENT
  Age: 90 Year
  Sex: Male
  Weight: 60.7 kg

DRUGS (1)
  1. OCTREOTIDE ACETATE [Suspect]
     Indication: DIARRHOEA
     Dosage: 0.05 MG BID SQ
     Route: 058
     Dates: start: 20091218

REACTIONS (2)
  - FALL [None]
  - HYPOGLYCAEMIA [None]
